FAERS Safety Report 8885955 (Version 1)
Quarter: 2012Q4

REPORT INFORMATION
  Report Type: Report from Study
  Country: DE (occurrence: DE)
  Receive Date: 20121105
  Receipt Date: 20121105
  Transmission Date: 20130627
  Serious: Yes (Hospitalization)
  Sender: FDA-Public Use
  Company Number: DE-ROCHE-1152042

PATIENT
  Age: 65 Year
  Sex: Female
  Weight: 69 kg

DRUGS (3)
  1. PEG-INTERFERON ALFA 2A [Suspect]
     Indication: CHRONIC HEPATITIS C
     Route: 058
     Dates: start: 20120114
  2. RIBAVIRIN [Suspect]
     Indication: CHRONIC HEPATITIS C
     Dosage: 400 mg in the morning, 600 mg in the evening
     Route: 048
     Dates: start: 20120114
  3. INCIVO [Suspect]
     Indication: CHRONIC HEPATITIS C
     Route: 065
     Dates: start: 20120114, end: 20120406

REACTIONS (1)
  - Transient ischaemic attack [Recovered/Resolved]
